FAERS Safety Report 24252976 (Version 6)
Quarter: 2025Q4

REPORT INFORMATION
  Report Type: Report from Study
  Country: US (occurrence: US)
  Receive Date: 20240827
  Receipt Date: 20251028
  Transmission Date: 20260117
  Serious: Yes (Other)
  Sender: ABBVIE
  Company Number: US-ABBVIE-5894382

PATIENT
  Age: 62 Year
  Sex: Female
  Weight: 63.502 kg

DRUGS (4)
  1. SKYRIZI [Suspect]
     Active Substance: RISANKIZUMAB-RZAA
     Indication: Psoriasis
     Dosage: SOLUTION FOR INJECTION IN PRE-FILLED PEN
     Route: 058
     Dates: start: 20230602
  2. FLEXERIL [Concomitant]
     Active Substance: CYCLOBENZAPRINE HYDROCHLORIDE
     Indication: Rheumatoid arthritis
  3. GABAPENTIN [Concomitant]
     Active Substance: GABAPENTIN
     Indication: Rheumatoid arthritis
  4. LEFLUNOMIDE [Concomitant]
     Active Substance: LEFLUNOMIDE
     Indication: Rheumatoid arthritis

REACTIONS (20)
  - Foot fracture [Recovering/Resolving]
  - Vomiting [Recovered/Resolved]
  - Loss of consciousness [Recovered/Resolved]
  - Nausea [Recovered/Resolved]
  - Loss of consciousness [Recovered/Resolved]
  - Feeling hot [Recovered/Resolved]
  - Foot fracture [Recovered/Resolved]
  - Arthralgia [Recovering/Resolving]
  - Foot fracture [Recovered/Resolved]
  - Loss of consciousness [Recovered/Resolved]
  - Seizure [Recovered/Resolved]
  - Tendon rupture [Recovered/Resolved]
  - Ligament rupture [Recovered/Resolved]
  - Loss of consciousness [Recovered/Resolved]
  - Pain in extremity [Recovered/Resolved]
  - Hypoacusis [Recovered/Resolved]
  - Joint swelling [Recovering/Resolving]
  - Headache [Recovering/Resolving]
  - Vomiting [Recovering/Resolving]
  - Seizure [Recovered/Resolved]

NARRATIVE: CASE EVENT DATE: 20231001
